FAERS Safety Report 12378530 (Version 1)
Quarter: 2016Q2

REPORT INFORMATION
  Report Type: Spontaneous
  Country: US (occurrence: US)
  Receive Date: 20160517
  Receipt Date: 20160517
  Transmission Date: 20160815
  Serious: Yes (Other)
  Sender: FDA-Public Use
  Company Number: US-TEVA-659256USA

PATIENT
  Age: 28 Year
  Sex: Female

DRUGS (2)
  1. ZECUITY [Suspect]
     Active Substance: SUMATRIPTAN SUCCINATE
     Indication: MIGRAINE
     Route: 062
     Dates: start: 201604
  2. ZECUITY [Suspect]
     Active Substance: SUMATRIPTAN SUCCINATE
     Route: 062
     Dates: start: 201604

REACTIONS (7)
  - Application site burn [Recovered/Resolved]
  - Application site swelling [Recovered/Resolved]
  - Application site scab [Recovered/Resolved]
  - Application site vesicles [Recovered/Resolved]
  - Intentional product use issue [Recovered/Resolved]
  - Product physical issue [Recovered/Resolved]
  - Application site erythema [Recovered/Resolved]

NARRATIVE: CASE EVENT DATE: 201604
